FAERS Safety Report 18253216 (Version 1)
Quarter: 2020Q3

REPORT INFORMATION
  Report Type: Report from Study
  Country: NL (occurrence: NL)
  Receive Date: 20200910
  Receipt Date: 20200910
  Transmission Date: 20201103
  Serious: Yes (Death)
  Sender: FDA-Public Use
  Company Number: PHHY2018NL116795

PATIENT
  Sex: Female

DRUGS (1)
  1. ZOMETA [Suspect]
     Active Substance: ZOLEDRONIC ACID
     Indication: METASTASIS
     Dosage: 4MG/100ML, ONCE PER 12 WEEKS
     Route: 042

REACTIONS (2)
  - Inappropriate schedule of product administration [Unknown]
  - Death [Fatal]
